FAERS Safety Report 4411764-5 (Version None)
Quarter: 2004Q3

REPORT INFORMATION
  Report Type: 
  Country: None (occurrence: None)
  Receive Date: 20040728
  Receipt Date: 20040706
  Transmission Date: 20050211
  Serious: Yes (Other)
  Sender: FDA-Public Use
  Company Number: DE_040713912

PATIENT
  Age: 82 Year
  Sex: Male
  Weight: 84 kg

DRUGS (4)
  1. FORTEO [Suspect]
     Indication: HAEMOCHROMATOSIS
     Dosage: 20 UG/1 DAY
     Dates: start: 20040701
  2. FORTEO [Suspect]
     Indication: OSTEOPOROSIS
     Dosage: 20 UG/1 DAY
     Dates: start: 20040701
  3. CARMEN (LERCANIDIPINE) [Concomitant]
  4. ENALAPRIL MALEATE [Concomitant]

REACTIONS (3)
  - ANAPHYLACTIC REACTION [None]
  - CHILLS [None]
  - COLD SWEAT [None]
